FAERS Safety Report 9850233 (Version 1)
Quarter: 2013Q4

REPORT INFORMATION
  Report Type: Spontaneous
  Country: US (occurrence: None)
  Receive Date: 20131226
  Receipt Date: 20131226
  Transmission Date: 20140711
  Serious: Yes (Other)
  Sender: FDA-Public Use
  Company Number: PHEH2013US005336

PATIENT
  Age: 72 Year
  Sex: Female

DRUGS (2)
  1. SANDOSTATIN LAR DEPOT (OCTREOTIDE WITH POLY(D L-LACTIDE-CO-GLYCOLIDE)) SUSPENSION [Suspect]
     Indication: NEOPLASM
     Dosage: 30 MG ONCE A MONTH, INJECTABLE NOS
  2. PREMARIN (ESTROGENS CONJUGATED) [Concomitant]

REACTIONS (1)
  - Neoplasm [None]
